FAERS Safety Report 9563770 (Version 1)
Quarter: 2013Q3

REPORT INFORMATION
  Report Type: Spontaneous
  Country: US (occurrence: None)
  Receive Date: 20130926
  Receipt Date: 20130926
  Transmission Date: 20140515
  Serious: No
  Sender: FDA-Public Use
  Company Number: None

PATIENT
  Age: 55 Year
  Sex: Male
  Weight: 84.82 kg

DRUGS (1)
  1. TOVIAZ [Suspect]
     Indication: NOCTURIA
     Route: 048
     Dates: start: 20130725, end: 20130807

REACTIONS (3)
  - Restless legs syndrome [None]
  - Condition aggravated [None]
  - Insomnia [None]
